FAERS Safety Report 19254417 (Version 1)
Quarter: 2021Q2

REPORT INFORMATION
  Report Type: Spontaneous
  Country: US (occurrence: US)
  Receive Date: 20210513
  Receipt Date: 20210513
  Transmission Date: 20210717
  Serious: Yes (Other)
  Sender: FDA-Public Use
  Company Number: US-GW PHARMA-202105USGW02285

PATIENT

DRUGS (1)
  1. EPIDIOLEX [Suspect]
     Active Substance: CANNABIDIOL
     Indication: LENNOX-GASTAUT SYNDROME
     Dosage: 20.10 MG/KG/DAY, 570 MILLIGRAM, BID
     Route: 048
     Dates: start: 201908

REACTIONS (4)
  - Product prescribing issue [Unknown]
  - Product dose omission issue [Unknown]
  - Seizure [Unknown]
  - Product distribution issue [Unknown]

NARRATIVE: CASE EVENT DATE: 202104
